FAERS Safety Report 8696566 (Version 3)
Quarter: 2012Q4

REPORT INFORMATION
  Report Type: Report from Study
  Country: DE (occurrence: DE)
  Receive Date: 20120801
  Receipt Date: 20120921
  Transmission Date: 20130627
  Serious: Yes (Other)
  Sender: FDA-Public Use
  Company Number: DE-CELGENEUS-062-21880-12072433

PATIENT
  Age: 67 Year
  Sex: Male
  Weight: 87 kg

DRUGS (10)
  1. REVLIMID [Suspect]
     Indication: MULTIPLE MYELOMA
     Dosage: 15 or 25 mg daily
     Route: 048
     Dates: start: 20091106, end: 20110331
  2. REVLIMID [Suspect]
     Route: 048
     Dates: start: 20110408, end: 20110428
  3. REVLIMID [Suspect]
     Route: 048
     Dates: start: 20110513, end: 20110602
  4. FINASTERIDE [Concomitant]
     Indication: PROSTATIC HYPERTROPHY
     Route: 065
     Dates: start: 20101008
  5. CARVEDILOL [Concomitant]
     Indication: HYPERTENSION
     Route: 065
     Dates: start: 200904
  6. KARVEZIDE [Concomitant]
     Indication: HYPERTENSION
     Dosage: 25 Milligram
     Route: 065
     Dates: start: 200903
  7. ACETYLSALICYLIC ACID [Concomitant]
     Indication: THROMBOSIS PROPHYLAXIS
     Route: 065
     Dates: start: 20091106, end: 20110906
  8. NEUPOGEN [Concomitant]
     Indication: NEUTROPENIA
     Route: 065
     Dates: start: 20110505
  9. BONDRONAT [Concomitant]
     Indication: PROPHYLAXIS
     Route: 065
  10. AMLODIPINE [Concomitant]
     Indication: HYPERTENSION
     Dosage: 5 Milligram
     Route: 065
     Dates: start: 20090520

REACTIONS (1)
  - Myelodysplastic syndrome [Not Recovered/Not Resolved]
